FAERS Safety Report 24270014 (Version 1)
Quarter: 2024Q3

REPORT INFORMATION
  Report Type: Spontaneous
  Country: KR (occurrence: KR)
  Receive Date: 20240830
  Receipt Date: 20240830
  Transmission Date: 20241017
  Serious: Yes (Hospitalization)
  Sender: JOHNSON AND JOHNSON
  Company Number: KR-JNJFOC-20240855651

PATIENT
  Age: 76 Year
  Sex: Male

DRUGS (1)
  1. SPORANOX [Suspect]
     Active Substance: ITRACONAZOLE
     Indication: Sinusitis fungal
     Route: 065

REACTIONS (4)
  - Orbital apex syndrome [Unknown]
  - Orbital infection [Recovered/Resolved]
  - Sinusitis fungal [Recovered/Resolved]
  - Drug ineffective [Unknown]
